FAERS Safety Report 5739261-5 (Version None)
Quarter: 2008Q2

REPORT INFORMATION
  Report Type: 
  Country: None (occurrence: None)
  Receive Date: 20080515
  Receipt Date: 20080507
  Transmission Date: 20081010
  Serious: Yes (Hospitalization, Other)
  Sender: FDA-Public Use
  Company Number: AU-AVENTIS-200814260GDDC

PATIENT
  Age: 84 Year
  Sex: Male

DRUGS (2)
  1. LANTUS [Suspect]
     Route: 058
     Dates: start: 20070308
  2. AUTOPEN INSULIN INJECTION PEN [Suspect]

REACTIONS (2)
  - BLADDER DISORDER [None]
  - LOWER LIMB FRACTURE [None]
